FAERS Safety Report 9848799 (Version 1)
Quarter: 2014Q1

REPORT INFORMATION
  Report Type: Spontaneous
  Country: US (occurrence: None)
  Receive Date: 20140127
  Receipt Date: 20140127
  Transmission Date: 20141002
  Serious: Yes (Hospitalization)
  Sender: FDA-Public Use
  Company Number: None

PATIENT
  Age: 37 Year
  Sex: Female
  Weight: 46.7 kg

DRUGS (1)
  1. ONFI [Suspect]
     Route: 048

REACTIONS (1)
  - Drug hypersensitivity [None]
